FAERS Safety Report 13075854 (Version 1)
Quarter: 2016Q4

REPORT INFORMATION
  Report Type: Spontaneous
  Country: US (occurrence: US)
  Receive Date: 20161229
  Receipt Date: 20161229
  Transmission Date: 20170207
  Serious: Yes (Disabling)
  Sender: FDA-Public Use
  Company Number: None

PATIENT
  Age: 54 Year
  Sex: Female
  Weight: 70.65 kg

DRUGS (2)
  1. BENZONATATE. [Suspect]
     Active Substance: BENZONATATE
     Indication: CHRONIC OBSTRUCTIVE PULMONARY DISEASE
     Dosage: ?          QUANTITY:7 CAPSULE(S);?
     Route: 048
     Dates: start: 20161227, end: 20161229
  2. BENZONATATE. [Suspect]
     Active Substance: BENZONATATE
     Indication: COUGH
     Dosage: ?          QUANTITY:7 CAPSULE(S);?
     Route: 048
     Dates: start: 20161227, end: 20161229

REACTIONS (10)
  - Headache [None]
  - Loss of consciousness [None]
  - Hallucination, visual [None]
  - Aphonia [None]
  - Oropharyngeal pain [None]
  - Hallucination, auditory [None]
  - Dysphonia [None]
  - Choking [None]
  - Wheezing [None]
  - Chest discomfort [None]

NARRATIVE: CASE EVENT DATE: 20161228
